FAERS Safety Report 4579914-8 (Version None)
Quarter: 2005Q1

REPORT INFORMATION
  Report Type: 
  Country: None (occurrence: None)
  Receive Date: 20050210
  Receipt Date: 20050131
  Transmission Date: 20050727
  Serious: Yes (Hospitalization)
  Sender: FDA-Public Use
  Company Number: 2005023160

PATIENT
  Age: 60 Year
  Sex: Female

DRUGS (10)
  1. ROGAINE [Suspect]
     Indication: ALOPECIA
     Dosage: 1 ML, BID, TOPICAL
     Route: 061
  2. NAPROXEN SODIUM [Concomitant]
  3. METFORMIN HCL [Concomitant]
  4. GLYBURIDE [Concomitant]
  5. FUROSEMIDE [Concomitant]
  6. MULTIVITAMINS (ASCORBIC ACID, ERGOCALCIFEROL, FOLIC ACID, NICOTINAMIDE [Concomitant]
  7. GARLIC (GARLIC) [Concomitant]
  8. CALCIUM (CALCIUM) [Concomitant]
  9. OXYGEN (OXYGEN) [Concomitant]
  10. ACETYLSALICYLIC ACID SRT [Concomitant]

REACTIONS (3)
  - HAIR GROWTH ABNORMAL [None]
  - MYOCARDIAL INFARCTION [None]
  - VENOUS OCCLUSION [None]
